FAERS Safety Report 7647342-4 (Version None)
Quarter: 2011Q3

REPORT INFORMATION
  Report Type: 
  Country: None (occurrence: None)
  Receive Date: 20110726
  Receipt Date: 20110718
  Transmission Date: 20111222
  Serious: Yes (Other)
  Sender: FDA-Public Use
  Company Number: 2011SP033838

PATIENT
  Age: 43 Year
  Sex: Male

DRUGS (6)
  1. RADIOTHERAPY [Concomitant]
  2. TEMODAL [Suspect]
     Indication: GLIOBLASTOMA
     Dosage: 300 MG;QD;PO ; 300 MG;QD;PO ; 300 MG;QD;PO ; 400 MG;QD;PO
     Route: 048
     Dates: start: 20110101, end: 20110101
  3. TEMODAL [Suspect]
     Indication: GLIOBLASTOMA
     Dosage: 300 MG;QD;PO ; 300 MG;QD;PO ; 300 MG;QD;PO ; 400 MG;QD;PO
     Route: 048
     Dates: start: 20110630
  4. TEMODAL [Suspect]
     Indication: GLIOBLASTOMA
     Dosage: 300 MG;QD;PO ; 300 MG;QD;PO ; 300 MG;QD;PO ; 400 MG;QD;PO
     Route: 048
     Dates: start: 20110326
  5. TEMODAL [Suspect]
     Indication: GLIOBLASTOMA
     Dosage: 300 MG;QD;PO ; 300 MG;QD;PO ; 300 MG;QD;PO ; 400 MG;QD;PO
     Route: 048
     Dates: start: 20110422
  6. TEMODAL [Suspect]
     Indication: GLIOBLASTOMA
     Dosage: 300 MG;QD;PO ; 300 MG;QD;PO ; 300 MG;QD;PO ; 400 MG;QD;PO
     Route: 048
     Dates: start: 20110523

REACTIONS (8)
  - HEMIPARESIS [None]
  - PHLEBITIS [None]
  - BRAIN OEDEMA [None]
  - INSOMNIA [None]
  - BALANCE DISORDER [None]
  - INCONTINENCE [None]
  - TRANSAMINASES INCREASED [None]
  - PARALYSIS FLACCID [None]
